FAERS Safety Report 15732641 (Version 1)
Quarter: 2018Q4

REPORT INFORMATION
  Report Type: Spontaneous
  Country: FR (occurrence: FR)
  Receive Date: 20181218
  Receipt Date: 20181218
  Transmission Date: 20190205
  Serious: Yes (Other)
  Sender: FDA-Public Use
  Company Number: FR-BAYER-2018-228598

PATIENT
  Sex: Female

DRUGS (4)
  1. BENFLUOREX [Suspect]
     Active Substance: BENFLUOREX
     Indication: PRODUCT USED FOR UNKNOWN INDICATION
     Dosage: UNK
  2. GLUCOR [Suspect]
     Active Substance: ACARBOSE
     Indication: PRODUCT USED FOR UNKNOWN INDICATION
     Dosage: UNK
  3. ISOMERIDE [Suspect]
     Active Substance: DEXFENFLURAMINE
     Indication: PRODUCT USED FOR UNKNOWN INDICATION
     Dosage: 15 MG, UNK
  4. BENFLUOREX [Suspect]
     Active Substance: BENFLUOREX
     Indication: PRODUCT USED FOR UNKNOWN INDICATION
     Dosage: 150 MG, UNK
     Route: 048

REACTIONS (9)
  - Pulmonary arterial pressure increased [Unknown]
  - Cardiac murmur [Unknown]
  - Neuropathy peripheral [Unknown]
  - Ischaemic stroke [Recovered/Resolved with Sequelae]
  - Decreased activity [Unknown]
  - Pulmonary hypertension [Unknown]
  - Type 2 diabetes mellitus [Not Recovered/Not Resolved]
  - Drug intolerance [Unknown]
  - Dyspnoea [Unknown]

NARRATIVE: CASE EVENT DATE: 1995
